FAERS Safety Report 11079042 (Version 1)
Quarter: 2015Q2

REPORT INFORMATION
  Report Type: Spontaneous
  Country: US (occurrence: None)
  Receive Date: 20150429
  Receipt Date: 20150429
  Transmission Date: 20150821
  Serious: Yes (Other)
  Sender: FDA-Public Use
  Company Number: None

PATIENT
  Age: 94 Year
  Sex: Male
  Weight: 63.5 kg

DRUGS (2)
  1. AVODART [Suspect]
     Active Substance: DUTASTERIDE
     Indication: MICTURITION URGENCY
     Route: 048
     Dates: start: 20150411, end: 20150428
  2. AVODART [Suspect]
     Active Substance: DUTASTERIDE
     Indication: BENIGN PROSTATIC HYPERPLASIA
     Route: 048
     Dates: start: 20150411, end: 20150428

REACTIONS (2)
  - Treatment noncompliance [None]
  - Anger [None]

NARRATIVE: CASE EVENT DATE: 20150428
